FAERS Safety Report 6055741-X (Version None)
Quarter: 2009Q1

REPORT INFORMATION
  Report Type: 
  Country: None (occurrence: None)
  Receive Date: 20090126
  Receipt Date: 20090112
  Transmission Date: 20090719
  Serious: Yes (Death, Hospitalization, Other)
  Sender: FDA-Public Use
  Company Number: 55972

PATIENT
  Age: 14 Year
  Sex: Female

DRUGS (2)
  1. ONDANSETRON [Suspect]
     Indication: ABDOMINAL PAIN
     Dosage: 4MG IM
     Route: 030
  2. ONDANSETRON [Suspect]
     Indication: VOMITING
     Dosage: 4MG IM
     Route: 030

REACTIONS (6)
  - ALTERED STATE OF CONSCIOUSNESS [None]
  - CREPITATIONS [None]
  - DIZZINESS [None]
  - SHOCK [None]
  - VENTRICULAR FIBRILLATION [None]
  - VENTRICULAR TACHYCARDIA [None]
